FAERS Safety Report 5804910-X (Version None)
Quarter: 2008Q3

REPORT INFORMATION
  Report Type: 
  Country: None (occurrence: None)
  Receive Date: 20080709
  Receipt Date: 20080630
  Transmission Date: 20090109
  Serious: Yes (Other)
  Sender: FDA-Public Use
  Company Number: PHHY2008FR12542

PATIENT
  Sex: Male

DRUGS (6)
  1. VALSARTAN AND HYDROCHLOROTHIAZIDE [Suspect]
     Dosage: 160/12.5 MG/DAY
     Dates: end: 20080107
  2. BI-PROFENID [Suspect]
     Dosage: 75 MG, QD
     Route: 048
     Dates: start: 20080103, end: 20080104
  3. BI-PROFENID [Suspect]
     Dosage: 150 MG, ONCE/SINGLE
     Route: 048
     Dates: start: 20080107, end: 20080107
  4. PROPOXYPHENE HCL AND ACETAMINOPHEN [Concomitant]
     Dosage: 2 CAPSULES/DAY
     Route: 048
     Dates: start: 20080103, end: 20080104
  5. PROPOXYPHENE HCL AND ACETAMINOPHEN [Concomitant]
     Dosage: 2 CAPSULES/DAY
     Route: 048
     Dates: start: 20080109
  6. NICARDIPINE HCL [Concomitant]
     Indication: HYPERTENSION

REACTIONS (5)
  - BLOOD CREATININE INCREASED [None]
  - BLOOD UREA INCREASED [None]
  - DRUG INTERACTION [None]
  - RENAL FAILURE ACUTE [None]
  - RIB FRACTURE [None]
